FAERS Safety Report 9791972 (Version 1)
Quarter: 2014Q1

REPORT INFORMATION
  Report Type: Not Available
  Country: DE (occurrence: DE)
  Receive Date: 20140102
  Receipt Date: 20140102
  Transmission Date: 20141002
  Serious: Yes (Congenital Anomaly)
  Sender: FDA-Public Use
  Company Number: DE-ASTELLAS-2013EU011336

PATIENT
  Age: 1 Day
  Sex: Male
  Weight: 2.61 kg

DRUGS (1)
  1. TACROLIMUS SYSTEMIC [Suspect]
     Indication: RENAL TRANSPLANT
     Dosage: 5 MG, UNKNOWN/D
     Route: 064

REACTIONS (2)
  - Ureteric stenosis [Not Recovered/Not Resolved]
  - Pyelocaliectasis [Not Recovered/Not Resolved]
